FAERS Safety Report 6409312-3 (Version None)
Quarter: 2009Q4

REPORT INFORMATION
  Report Type: 
  Country: None (occurrence: None)
  Receive Date: 20091021
  Receipt Date: 20091013
  Transmission Date: 20100525
  Serious: Yes (Hospitalization)
  Sender: FDA-Public Use
  Company Number: US-GILEAD-2009-0022888

PATIENT
  Sex: Male
  Weight: 98.518 kg

DRUGS (14)
  1. LETAIRIS [Suspect]
     Indication: PULMONARY ARTERIAL HYPERTENSION
     Route: 048
     Dates: start: 20090622, end: 20090702
  2. COUMADIN [Concomitant]
  3. ASPIRIN [Concomitant]
  4. LISINOPRIL [Concomitant]
  5. LASIX [Concomitant]
  6. ZOCOR [Concomitant]
  7. GLIPIZIDE [Concomitant]
  8. GLUCOPHAGE [Concomitant]
  9. ACTOS [Concomitant]
  10. RESTORIL [Concomitant]
  11. FLUOXETINE [Concomitant]
  12. ZANTAC [Concomitant]
  13. IRON [Concomitant]
  14. TRIAMCINOLONE [Concomitant]

REACTIONS (2)
  - OEDEMA PERIPHERAL [None]
  - PLEURAL EFFUSION [None]
